FAERS Safety Report 15206786 (Version 3)
Quarter: 2018Q3

REPORT INFORMATION
  Report Type: Spontaneous
  Country: ES (occurrence: ES)
  Receive Date: 20180727
  Receipt Date: 20180921
  Transmission Date: 20181010
  Serious: Yes (Hospitalization)
  Sender: FDA-Public Use
  Company Number: ES-AUROBINDO-AUR-APL-2018-037839

PATIENT
  Age: 78 Year
  Sex: Female

DRUGS (6)
  1. FUROSEMIDE. [Concomitant]
     Active Substance: FUROSEMIDE
     Indication: CARDIAC FAILURE CONGESTIVE
     Dosage: 20 MILLIGRAM, ONCE A DAY
     Route: 048
  2. CITALOPRAM [Suspect]
     Active Substance: CITALOPRAM HYDROBROMIDE
     Indication: PRODUCT USED FOR UNKNOWN INDICATION
     Dosage: 10 MG, QD
     Route: 048
     Dates: start: 20170206, end: 20170821
  3. SINTROM [Interacting]
     Active Substance: ACENOCOUMAROL
     Indication: CARDIAC VALVE PROSTHESIS USER
     Dosage: 1 MG, QD
     Route: 048
     Dates: start: 2006, end: 20170821
  4. SIMVASTATIN. [Concomitant]
     Active Substance: SIMVASTATIN
     Indication: DYSLIPIDAEMIA
     Dosage: 10 MILLIGRAM, ONCE A DAY
     Route: 048
  5. OMEPRAZOLE. [Concomitant]
     Active Substance: OMEPRAZOLE
     Indication: PROPHYLAXIS AGAINST GASTROINTESTINAL ULCER
     Dosage: 20 MILLIGRAM, ONCE A DAY
     Route: 048
  6. EUTIROX [Interacting]
     Active Substance: LEVOTHYROXINE SODIUM
     Indication: HYPOTHYROIDISM
     Dosage: 1 DF, QD  (75 UG)
     Route: 048
     Dates: start: 2006, end: 20170821

REACTIONS (1)
  - Tongue haematoma [Recovering/Resolving]

NARRATIVE: CASE EVENT DATE: 20170821
